FAERS Safety Report 5706492-X (Version None)
Quarter: 2008Q2

REPORT INFORMATION
  Report Type: 
  Country: None (occurrence: None)
  Receive Date: 20080414
  Receipt Date: 20080331
  Transmission Date: 20081010
  Serious: Yes (Other)
  Sender: FDA-Public Use
  Company Number: 2008S1005222

PATIENT
  Age: 39 Year
  Sex: Male

DRUGS (6)
  1. IODINE [Suspect]
     Indication: HYPERTHYROIDISM
     Dosage: 15 MCI;
  2. WARFARIN SODIUM [Suspect]
     Indication: ATRIAL FIBRILLATION
     Dosage: 2.5 MG; 5 MG; 5 MG; 2.5 MG
  3. THIAMAZOLE [Concomitant]
  4. BETA BLOCKING AGENTS [Concomitant]
  5. DIGOXIN [Concomitant]
  6. PROPRANOLOL [Concomitant]

REACTIONS (11)
  - DRUG TOXICITY [None]
  - GINGIVAL BLEEDING [None]
  - GOITRE [None]
  - HYPERTHYROIDISM [None]
  - INSOMNIA [None]
  - NERVOUSNESS [None]
  - PALPITATIONS [None]
  - PROTHROMBIN TIME PROLONGED [None]
  - TEMPERATURE INTOLERANCE [None]
  - THYROTOXIC CRISIS [None]
  - WEIGHT DECREASED [None]
